FAERS Safety Report 16355955 (Version 1)
Quarter: 2019Q2

REPORT INFORMATION
  Report Type: Spontaneous
  Country: US (occurrence: US)
  Receive Date: 20190526
  Receipt Date: 20190526
  Transmission Date: 20190711
  Serious: No
  Sender: FDA-Public Use
  Company Number: US-JNJFOC-20190515316

PATIENT
  Sex: Female
  Weight: 8.16 kg

DRUGS (2)
  1. MOTRIN INFANTS [Suspect]
     Active Substance: IBUPROFEN
     Route: 065
  2. MOTRIN INFANTS [Suspect]
     Active Substance: IBUPROFEN
     Indication: PYREXIA
     Dosage: FREQUENCY: 4-6 OR 6-8 HOURS
     Route: 065

REACTIONS (2)
  - Incorrect dosage administered [Unknown]
  - Off label use [Unknown]
